FAERS Safety Report 5928736-1 (Version None)
Quarter: 2008Q4

REPORT INFORMATION
  Report Type: 
  Country: None (occurrence: None)
  Receive Date: 20081023
  Receipt Date: 20081016
  Transmission Date: 20090506
  Serious: Yes (Death, Hospitalization)
  Sender: FDA-Public Use
  Company Number: FR-MERCK-0810FRA00059

PATIENT
  Age: 49 Year
  Sex: Female

DRUGS (10)
  1. PRIMAXIN [Suspect]
     Indication: PNEUMONIA
     Route: 042
     Dates: start: 20080626, end: 20080718
  2. SULFAMETHOXAZOLE AND TRIMETHOPRIM [Suspect]
     Indication: PNEUMONIA
     Route: 042
     Dates: start: 20080716, end: 20080718
  3. METHYLPREDNISOLONE SODIUM SUCCINATE [Concomitant]
     Indication: ACUTE RESPIRATORY DISTRESS SYNDROME
     Route: 042
     Dates: start: 20080716, end: 20080716
  4. TRIMETAZIDINE [Concomitant]
     Indication: MYOCARDIAL INFARCTION
     Route: 048
     Dates: start: 20080716
  5. ASPIRIN [Concomitant]
     Indication: MYOCARDIAL INFARCTION
     Route: 048
     Dates: start: 20080716
  6. CLOPIDOGREL BISULFATE [Concomitant]
     Indication: MYOCARDIAL INFARCTION
     Route: 048
     Dates: start: 20080716
  7. ATORVASTATIN [Concomitant]
     Indication: MYOCARDIAL INFARCTION
     Route: 048
     Dates: start: 20080716
  8. ESOMEPRAZOLE [Concomitant]
     Route: 042
     Dates: start: 20080716
  9. PROPOFOL [Concomitant]
     Indication: SEDATION
     Route: 042
     Dates: start: 20080626, end: 20080715
  10. NOREPINEPHRINE HYDROCHLORIDE [Concomitant]
     Indication: SHOCK
     Route: 042
     Dates: start: 20080626

REACTIONS (3)
  - BONE MARROW FAILURE [None]
  - MULTI-ORGAN FAILURE [None]
  - SEPTIC SHOCK [None]
